FAERS Safety Report 7072526-6 (Version None)
Quarter: 2010Q4

REPORT INFORMATION
  Report Type: 
  Country: None (occurrence: None)
  Receive Date: 20101029
  Receipt Date: 20100205
  Transmission Date: 20110411
  Serious: No
  Sender: FDA-Public Use
  Company Number: A0843257A

PATIENT
  Age: 77 Year
  Sex: Male

DRUGS (9)
  1. ADVAIR DISKUS 100/50 [Suspect]
     Dosage: 1PUFF TWICE PER DAY
     Route: 055
     Dates: start: 20100101
  2. AMITRIPTYLINE HCL [Concomitant]
  3. SPIRIVA [Concomitant]
  4. BUSPIRONE HCL [Concomitant]
  5. ZOLOFT [Concomitant]
  6. OMEPRAZOLE [Concomitant]
  7. KLONOPIN [Concomitant]
  8. ALBUTEROL SULFATE [Concomitant]
  9. IPRATROPIUM BROMIDE [Concomitant]

REACTIONS (2)
  - COUGH [None]
  - THERAPEUTIC RESPONSE UNEXPECTED [None]
